FAERS Safety Report 21851566 (Version 2)
Quarter: 2023Q1

REPORT INFORMATION
  Report Type: Report from Study
  Country: US (occurrence: US)
  Receive Date: 20230112
  Receipt Date: 20230127
  Transmission Date: 20230417
  Serious: Yes (Hospitalization)
  Sender: FDA-Public Use
  Company Number: US-GBT-019393

PATIENT
  Age: 39 Year
  Sex: Male

DRUGS (2)
  1. OXBRYTA [Suspect]
     Active Substance: VOXELOTOR
     Indication: Anaemia
     Dates: start: 20200630
  2. OXYCODONE [Concomitant]
     Active Substance: OXYCODONE
     Indication: Sickle cell anaemia with crisis
     Dosage: TIME INTERVAL: 0.33333333 DAYS: PRN WITH PAIN
     Dates: start: 20221230

REACTIONS (1)
  - Sickle cell anaemia with crisis [Recovered/Resolved]

NARRATIVE: CASE EVENT DATE: 20221224
